FAERS Safety Report 24727175 (Version 14)
Quarter: 2025Q4

REPORT INFORMATION
  Report Type: Report from Study
  Country: US (occurrence: US)
  Receive Date: 20241212
  Receipt Date: 20251125
  Transmission Date: 20260117
  Serious: Yes (Hospitalization, Other)
  Sender: AUROBINDO
  Company Number: US-AUROBINDO-AUR-APL-2024-060141

PATIENT
  Age: 53 Year
  Sex: Female

DRUGS (52)
  1. PRALATREXATE [Suspect]
     Active Substance: PRALATREXATE
     Indication: Peripheral T-cell lymphoma unspecified stage IV
     Dosage: 20 MILLIGRAM/SQ. METER
     Dates: start: 20241120, end: 20241120
  2. PRALATREXATE [Suspect]
     Active Substance: PRALATREXATE
     Dosage: 30 MILLIGRAM/SQ. METER
     Dates: start: 20241127, end: 20241127
  3. PRALATREXATE [Suspect]
     Active Substance: PRALATREXATE
     Dosage: 6.67 MG/M2 (ON DAY1 AND DAY8 OF 21 DAYS CYCLE)
     Dates: start: 20241212, end: 20241212
  4. PRALATREXATE [Suspect]
     Active Substance: PRALATREXATE
     Dosage: 20 MG/M2
     Dates: start: 20241127, end: 20241127
  5. PRALATREXATE [Suspect]
     Active Substance: PRALATREXATE
     Dosage: 20 MILLIGRAM/SQ. METER
     Dates: start: 20241218, end: 20241218
  6. PRALATREXATE [Suspect]
     Active Substance: PRALATREXATE
     Dosage: 6.67 MG/M2 (ON DAY1 AND DAY8 OF 21 DAYS CYCLE)
     Dates: start: 20241227, end: 20241227
  7. PRALATREXATE [Suspect]
     Active Substance: PRALATREXATE
     Dosage: 6.67 MG/M2 (ON DAY1 AND DAY8 OF 21 DAYS CYCLE)
     Dates: start: 20241227, end: 20250115
  8. PRALATREXATE [Suspect]
     Active Substance: PRALATREXATE
     Dosage: 6.67 MG/M2 (ON DAY1 AND DAY8 OF 21 DAYS CYCLE)
     Dates: start: 20250108, end: 20250115
  9. PRALATREXATE [Suspect]
     Active Substance: PRALATREXATE
     Dosage: 20 MG/M2
     Dates: start: 20250108, end: 20250108
  10. PRALATREXATE [Suspect]
     Active Substance: PRALATREXATE
     Dosage: 20 MG/M2
     Dates: start: 20250115, end: 20250115
  11. PRALATREXATE [Suspect]
     Active Substance: PRALATREXATE
     Dosage: 20 MG/M2
     Dates: start: 20250129, end: 20250129
  12. PRALATREXATE [Suspect]
     Active Substance: PRALATREXATE
     Dosage: 20 MG/M2
     Dates: start: 20250212, end: 20250212
  13. PRALATREXATE [Suspect]
     Active Substance: PRALATREXATE
     Dosage: 20 MG/M2
  14. PRALATREXATE [Suspect]
     Active Substance: PRALATREXATE
     Dosage: 10 MG/M2
     Dates: start: 20250129, end: 20250129
  15. PRALATREXATE [Suspect]
     Active Substance: PRALATREXATE
     Dosage: 10 MG/M2
  16. CYCLOPHOSPHAMIDE [Suspect]
     Active Substance: CYCLOPHOSPHAMIDE
     Indication: Peripheral T-cell lymphoma unspecified stage IV
     Dosage: 750 MILLIGRAM/SQ. METER ((ON DAY 1 OF EVERY 21 DAYS CYCLE)
     Dates: start: 20241120, end: 20241120
  17. CYCLOPHOSPHAMIDE [Suspect]
     Active Substance: CYCLOPHOSPHAMIDE
     Dosage: 750 MILLIGRAM/SQ. METER
     Dates: start: 20241218, end: 20241218
  18. CYCLOPHOSPHAMIDE [Suspect]
     Active Substance: CYCLOPHOSPHAMIDE
     Dosage: 750 MILLIGRAM/SQ. METER
     Dates: start: 20250108, end: 20250108
  19. CYCLOPHOSPHAMIDE [Suspect]
     Active Substance: CYCLOPHOSPHAMIDE
     Dosage: 750 MILLIGRAM/SQ. METER
     Dates: start: 20250115, end: 20250115
  20. CYCLOPHOSPHAMIDE [Suspect]
     Active Substance: CYCLOPHOSPHAMIDE
     Dosage: 750 MILLIGRAM/SQ. METER
     Dates: start: 20250129, end: 20250129
  21. PREDNISONE [Suspect]
     Active Substance: PREDNISONE
     Indication: Peripheral T-cell lymphoma unspecified stage IV
     Dosage: 100 MILLIGRAM (FROM DAY 1 - DAY 5) OF 21 DAYS CYCLE, ORAL USE
  22. PREDNISONE [Suspect]
     Active Substance: PREDNISONE
     Dosage: 100 MILLIGRAM
     Route: 065
  23. PREDNISONE [Suspect]
     Active Substance: PREDNISONE
     Dosage: 100 MILLIGRAM
     Route: 065
  24. PREDNISONE [Suspect]
     Active Substance: PREDNISONE
     Dosage: 100 MILLIGRAM
     Route: 065
  25. PREDNISONE [Suspect]
     Active Substance: PREDNISONE
     Dosage: 100 MILLIGRAM
     Route: 065
  26. PREDNISONE [Suspect]
     Active Substance: PREDNISONE
     Dosage: 100 MILLIGRAM
     Route: 065
  27. PREDNISONE [Suspect]
     Active Substance: PREDNISONE
     Dosage: 100 MILLIGRAM
     Route: 065
  28. PREDNISONE [Suspect]
     Active Substance: PREDNISONE
     Dosage: 100 MILLIGRAM
     Route: 065
  29. PREDNISONE [Suspect]
     Active Substance: PREDNISONE
     Dosage: 100 MILLIGRAM
     Route: 065
  30. PREDNISONE [Suspect]
     Active Substance: PREDNISONE
     Dosage: 100 MILLIGRAM
     Route: 065
  31. PREDNISONE [Suspect]
     Active Substance: PREDNISONE
     Dosage: 100 MILLIGRAM
     Route: 065
  32. PREDNISONE [Suspect]
     Active Substance: PREDNISONE
     Dosage: 100 MILLIGRAM
     Route: 065
  33. PREDNISONE [Suspect]
     Active Substance: PREDNISONE
     Dosage: 100 MILLIGRAM
     Route: 065
  34. PREDNISONE [Suspect]
     Active Substance: PREDNISONE
     Dosage: 100 MILLIGRAM
     Route: 065
  35. PREDNISONE [Suspect]
     Active Substance: PREDNISONE
     Dosage: 100 MILLIGRAM
  36. PREDNISONE [Suspect]
     Active Substance: PREDNISONE
     Dosage: 100 MILLIGRAM
  37. PREDNISONE [Suspect]
     Active Substance: PREDNISONE
     Dosage: 100 MILLIGRAM
  38. PREDNISONE [Suspect]
     Active Substance: PREDNISONE
     Dosage: 100 MILLIGRAM
  39. PREDNISONE [Suspect]
     Active Substance: PREDNISONE
     Dosage: 100 MILLIGRAM
  40. PREDNISONE [Suspect]
     Active Substance: PREDNISONE
     Dosage: 100 MILLIGRAM
  41. EPIRUBICIN [Suspect]
     Active Substance: EPIRUBICIN
     Indication: Peripheral T-cell lymphoma unspecified stage IV
     Dosage: UNK
     Route: 065
  42. ONCOVIN [Suspect]
     Active Substance: VINCRISTINE SULFATE
     Indication: Peripheral T-cell lymphoma unspecified stage IV
     Dosage: 1.4 MILLIGRAM/SQ. METER
     Dates: start: 20241120, end: 20241120
  43. ONCOVIN [Suspect]
     Active Substance: VINCRISTINE SULFATE
     Dosage: 2 MILLIGRAM/SQ. METER
     Dates: start: 20241218, end: 20241218
  44. ONCOVIN [Suspect]
     Active Substance: VINCRISTINE SULFATE
     Dosage: 1.4 MILLIGRAM/SQ. METER
     Dates: start: 20250108, end: 20250108
  45. ONCOVIN [Suspect]
     Active Substance: VINCRISTINE SULFATE
     Dosage: 1.4 MILLIGRAM/SQ. METER
     Dates: start: 20250129, end: 20250129
  46. AZELASTINE [Concomitant]
     Active Substance: AZELASTINE
     Indication: Anaemia
     Dosage: 137 MICROGRAM, DAILY
  47. AZELASTINE [Concomitant]
     Active Substance: AZELASTINE
     Indication: Rhinitis allergic
  48. Omega-3-6-9 Complex [Concomitant]
     Indication: Product used for unknown indication
     Dosage: 1 DOSAGE FORM, DAILY
  49. FOLIC ACID [Concomitant]
     Active Substance: FOLIC ACID
     Indication: Supportive care
     Dosage: 1 MILLIGRAM, DAILY
  50. ONDANSETRON [Concomitant]
     Active Substance: ONDANSETRON
     Indication: Nausea
     Dosage: 8 MILLIGRAM, AS NECESSARY
     Dates: start: 20241120
  51. ONDANSETRON [Concomitant]
     Active Substance: ONDANSETRON
     Indication: Vomiting
  52. POTASSIUM CHLORIDE [Concomitant]
     Active Substance: POTASSIUM CHLORIDE
     Indication: Product used for unknown indication
     Dosage: 280 MILLIGRAM, TWO TIMES A DAY
     Dates: start: 20250205, end: 20250205

REACTIONS (6)
  - Febrile neutropenia [Recovered/Resolved]
  - Mucosal inflammation [Recovered/Resolved]
  - Diarrhoea [Recovered/Resolved]
  - Hypokalaemia [Recovered/Resolved]
  - Pyrexia [Recovered/Resolved]
  - Serum sickness [Recovered/Resolved]

NARRATIVE: CASE EVENT DATE: 20241130
